FAERS Safety Report 4467339-5 (Version None)
Quarter: 2004Q4

REPORT INFORMATION
  Report Type: 
  Country: None (occurrence: None)
  Receive Date: 20041006
  Receipt Date: 20040929
  Transmission Date: 20050328
  Serious: Yes (Hospitalization)
  Sender: FDA-Public Use
  Company Number: PHBS2004BR12988

PATIENT
  Age: 3 Year
  Sex: Male

DRUGS (1)
  1. FORASEQ [Suspect]
     Route: 063

REACTIONS (5)
  - DRUG EXPOSURE VIA BREAST MILK [None]
  - EAR INFECTION [None]
  - PNEUMONIA [None]
  - RHINITIS [None]
  - SINUSITIS [None]
